FAERS Safety Report 4859894-8 (Version None)
Quarter: 2005Q4

REPORT INFORMATION
  Report Type: 
  Country: None (occurrence: None)
  Receive Date: 20051215
  Receipt Date: 20051205
  Transmission Date: 20060501
  Serious: Yes (Life-Threatening)
  Sender: FDA-Public Use
  Company Number: GXKR2005GB02006

PATIENT
  Age: 88 Year
  Sex: Female
  Weight: 75 kg

DRUGS (13)
  1. ACETYLSALICYLIC ACID SRT [Suspect]
     Dosage: 75 MG, QD, ORAL
     Route: 048
  2. CITALOPRAM HYDROBROMIDE [Suspect]
     Dosage: 20 MG, QD
  3. HEPARIN [Suspect]
     Dosage: 5000 IU, BID, SUBCUTANEOUS
     Route: 058
  4. ISOTARD XL (ISOSORBIDE MONONITRATE) [Concomitant]
  5. PROCHLOPERAZINE (PROCHLORPERAZINE) [Concomitant]
  6. ZOPICLONE (ZOPICLONE) [Concomitant]
  7. CALCICHEW (CALCIUM CARBONATE) [Concomitant]
  8. NEORECORMON (EPOETIN BETA) [Concomitant]
  9. MOVICOL (MACROGOL, POTASSIUM CHLORIDE, SODIUM BICARBONATE, SODIUM CHLO [Concomitant]
  10. METOLAZONE [Concomitant]
  11. SPIRONOLACTONE [Concomitant]
  12. FUROSEMIDE [Concomitant]
  13. FERROUS SULFATE TAB [Concomitant]

REACTIONS (2)
  - GASTROINTESTINAL HAEMORRHAGE [None]
  - OESOPHAGITIS [None]
